FAERS Safety Report 8556967-3 (Version None)
Quarter: 2012Q3

REPORT INFORMATION
  Report Type: 
  Country: None (occurrence: None)
  Receive Date: 20120801
  Receipt Date: 20120724
  Transmission Date: 20120928
  Serious: Yes (Other)
  Sender: FDA-Public Use
  Company Number: JP-VERTEX PHARMACEUTICALS INC.-AE-2012-008499

PATIENT
  Age: 53 Year
  Sex: Male

DRUGS (10)
  1. RIBAVIRIN [Concomitant]
     Indication: HEPATITIS C
     Route: 048
     Dates: start: 20120409
  2. TELAVIC (TELAPREVIR) [Suspect]
     Indication: HEPATITIS C
     Route: 048
     Dates: start: 20120409, end: 20120422
  3. PEGINTERFERON ALFA-2B [Concomitant]
     Route: 058
     Dates: start: 20120409
  4. TELAVIC (TELAPREVIR) [Suspect]
     Route: 048
     Dates: start: 20120423, end: 20120508
  5. RIBAVIRIN [Concomitant]
     Route: 048
     Dates: end: 20120605
  6. LENDORMIN [Concomitant]
     Route: 048
     Dates: start: 20120409
  7. TELAVIC (TELAPREVIR) [Suspect]
     Route: 048
     Dates: start: 20120508
  8. RIBAVIRIN [Concomitant]
     Route: 048
     Dates: start: 20120605
  9. LENDORMIN [Concomitant]
     Route: 048
  10. PURSENNID [Concomitant]
     Route: 048
     Dates: start: 20120420

REACTIONS (1)
  - ERYTHEMA MULTIFORME [None]
